FAERS Safety Report 25492142 (Version 3)
Quarter: 2025Q3

REPORT INFORMATION
  Report Type: Spontaneous
  Country: CA (occurrence: CA)
  Receive Date: 20250630
  Receipt Date: 20250801
  Transmission Date: 20251021
  Serious: Yes (Other)
  Sender: TEVA
  Company Number: CA-TEVA-VS-3345547

PATIENT
  Age: 28 Year
  Sex: Female

DRUGS (7)
  1. PREDNISONE [Suspect]
     Active Substance: PREDNISONE
     Indication: Immune-mediated myositis
     Route: 065
  2. MYCOPHENOLATE MOFETIL [Concomitant]
     Active Substance: MYCOPHENOLATE MOFETIL
     Indication: Myopathy
     Dosage: DOSE FORM: NOT SPECIFIED
     Route: 065
  3. IMMUNOGLOBULINS [Concomitant]
     Indication: Immune-mediated myositis
     Route: 065
  4. IMMUNOGLOBULINS [Concomitant]
     Indication: Immune-mediated myositis
     Route: 065
  5. METHOTREXATE SODIUM [Suspect]
     Active Substance: METHOTREXATE SODIUM
     Indication: Myopathy
     Dosage: DOSE FORM :NOT SPECIFIED
     Route: 065
  6. MYCOPHENOLATE MOFETIL [Suspect]
     Active Substance: MYCOPHENOLATE MOFETIL
     Indication: Immune-mediated myositis
     Dosage: DOSE FORM : NOT SPECIFIED
     Route: 065
  7. PREDNISONE [Concomitant]
     Active Substance: PREDNISONE
     Indication: Myopathy
     Route: 065

REACTIONS (6)
  - Cytopenia [Unknown]
  - Drug intolerance [Unknown]
  - Therapeutic product effect incomplete [Unknown]
  - Hepatic function abnormal [Unknown]
  - Off label use [Unknown]
  - Weight increased [Unknown]
